FAERS Safety Report 5154248-1 (Version None)
Quarter: 2006Q4

REPORT INFORMATION
  Report Type: 
  Country: None (occurrence: None)
  Receive Date: 20061120
  Receipt Date: 20061011
  Transmission Date: 20070319
  Serious: Yes (Other)
  Sender: FDA-Public Use
  Company Number: IE-ELI_LILLY_AND_COMPANY-IE200610002017

PATIENT
  Age: 14 Year
  Sex: Male
  Weight: 45 kg

DRUGS (6)
  1. ATOMOXETINE HYDROCHLORIDE [Suspect]
     Indication: ATTENTION DEFICIT/HYPERACTIVITY DISORDER
     Dosage: 25 MG, UNK
     Route: 048
     Dates: start: 20050527
  2. ATOMOXETINE HYDROCHLORIDE [Suspect]
     Dosage: 25 MG, UNK
     Route: 048
     Dates: end: 20060525
  3. ATOMOXETINE HYDROCHLORIDE [Suspect]
     Dosage: 18 MG, UNK
     Route: 048
     Dates: start: 20060616, end: 20060622
  4. ATOMOXETINE HYDROCHLORIDE [Suspect]
     Dosage: 25 MG, UNK
     Route: 048
     Dates: start: 20060623, end: 20061004
  5. ATOMOXETINE HYDROCHLORIDE [Suspect]
     Dosage: 25 MG, UNK
     Route: 048
     Dates: start: 20061007, end: 20061007
  6. ATOMOXETINE HYDROCHLORIDE [Suspect]
     Dosage: 18 MG, UNK
     Route: 048
     Dates: start: 20061010, end: 20061010

REACTIONS (7)
  - DEPRESSED MOOD [None]
  - DEPRESSION [None]
  - INSOMNIA [None]
  - SELF ESTEEM DECREASED [None]
  - SELF INJURIOUS BEHAVIOUR [None]
  - SOCIAL AVOIDANT BEHAVIOUR [None]
  - SUICIDAL IDEATION [None]
